FAERS Safety Report 14384782 (Version 2)
Quarter: 2018Q1

REPORT INFORMATION
  Report Type: Spontaneous
  Country: FR (occurrence: FR)
  Receive Date: 20180115
  Receipt Date: 20180201
  Transmission Date: 20180509
  Serious: Yes (Hospitalization, Other)
  Sender: FDA-Public Use
  Company Number: FR-JNJFOC-20180114334

PATIENT
  Age: 84 Year
  Sex: Female
  Weight: 57 kg

DRUGS (21)
  1. FUMAFER [Concomitant]
     Active Substance: FERROUS FUMARATE
     Route: 065
  2. DIFFU K [Concomitant]
     Active Substance: POTASSIUM CHLORIDE
     Dosage: DOSAGE: 600 (UNITS UNSPECIFIED), MORNING, MIDDAY AND EVENING.
     Route: 048
  3. TRAMADOL. [Concomitant]
     Active Substance: TRAMADOL
     Route: 065
  4. ATORVASTATIN [Concomitant]
     Active Substance: ATORVASTATIN
     Route: 065
  5. LEVOTHYROX [Concomitant]
     Active Substance: LEVOTHYROXINE
     Route: 048
  6. FUROSEMIDE. [Concomitant]
     Active Substance: FUROSEMIDE
     Route: 065
  7. HUMALOG [Concomitant]
     Active Substance: INSULIN LISPRO
     Route: 065
  8. LASILIX [Concomitant]
     Active Substance: FUROSEMIDE
     Route: 065
  9. LEVOFOLINIC ACID [Concomitant]
     Active Substance: LEVOLEUCOVORIN
     Dosage: DOSAGE: 25 MG/2.5 ML
     Route: 065
  10. CYANOCOBALAMIN. [Concomitant]
     Active Substance: CYANOCOBALAMIN
     Dosage: DOSAGE: 1000 MICROGRAM/2 ML
     Route: 065
  11. AMLODIPINE [Concomitant]
     Active Substance: AMLODIPINE BESYLATE
     Route: 048
  12. CORDARONE [Concomitant]
     Active Substance: AMIODARONE HYDROCHLORIDE
     Route: 048
  13. LEVOTHYROX [Concomitant]
     Active Substance: LEVOTHYROXINE
     Route: 048
  14. LANTUS [Concomitant]
     Active Substance: INSULIN GLARGINE
     Dosage: DOSAGE: 100 UNITS/ML, 3 ML CARTRIDGE, 12 IU BY THE SC ROUTE, EVENING
     Route: 058
  15. LEVOTHYROX [Concomitant]
     Active Substance: LEVOTHYROXINE
     Route: 048
  16. GLUCOSE [Concomitant]
     Active Substance: DEXTROSE
     Dosage: DOSAGE: 250 ML ECOFLAC BAG, INTRAVENOUS ROUTE, ONE BAG EVERY 24 HR
     Route: 042
  17. XARELTO [Suspect]
     Active Substance: RIVAROXABAN
     Indication: ATRIAL FIBRILLATION
     Route: 048
     Dates: start: 20171020, end: 20171119
  18. LOVENOX [Concomitant]
     Active Substance: ENOXAPARIN SODIUM
     Route: 058
  19. INEXIUM [Concomitant]
     Active Substance: ESOMEPRAZOLE
     Route: 048
  20. SUPROFEN [Concomitant]
     Active Substance: SUPROFEN
     Route: 065
  21. COUMADIN [Concomitant]
     Active Substance: WARFARIN SODIUM
     Dosage: DOSAGE: 2 MG SCORED TABLET, 1.5 TABLETS ORALLY EVENING
     Route: 048

REACTIONS (4)
  - Muscle haemorrhage [Unknown]
  - Cardiac tamponade [Unknown]
  - Acute kidney injury [Recovered/Resolved]
  - Pericardial haemorrhage [Unknown]

NARRATIVE: CASE EVENT DATE: 201711
